FAERS Safety Report 23605517 (Version 1)
Quarter: 2024Q1

REPORT INFORMATION
  Report Type: Spontaneous
  Country: US (occurrence: None)
  Receive Date: 20240306
  Receipt Date: 20240306
  Transmission Date: 20240410
  Serious: No
  Sender: FDA-Public Use
  Company Number: None

PATIENT
  Age: 67 Year
  Sex: Male

DRUGS (1)
  1. VELTASSA [Suspect]
     Active Substance: PATIROMER
     Indication: Hyperkalaemia
     Dosage: FREQUENCY : EVERY OTHER DAY;?
     Route: 048
     Dates: start: 20231018, end: 20240306

REACTIONS (1)
  - Rash [None]

NARRATIVE: CASE EVENT DATE: 20240306
